FAERS Safety Report 6503741-5 (Version None)
Quarter: 2009Q4

REPORT INFORMATION
  Report Type: 
  Country: None (occurrence: None)
  Receive Date: 20091216
  Receipt Date: 20091216
  Transmission Date: 20100525
  Serious: Yes (Other)
  Sender: FDA-Public Use
  Company Number: None

PATIENT
  Sex: Female
  Weight: 112.4921 kg

DRUGS (4)
  1. TOPAMAX [Suspect]
     Indication: CONVULSION PROPHYLAXIS
     Dosage: 2 PILLS 2X DAILY 8AM AND 8PM
     Dates: start: 20091001
  2. TOPAMAX [Suspect]
     Indication: CONVULSION PROPHYLAXIS
     Dosage: 2 PILLS 2X DAILY 8AM AND 8PM
     Dates: start: 20091101
  3. TOPAMAX [Suspect]
     Indication: CONVULSION PROPHYLAXIS
     Dosage: 2 PILLS 2X DAILY 8AM AND 8PM
     Dates: start: 20091201
  4. TOPAMAX [Suspect]
     Indication: CONVULSION PROPHYLAXIS
     Dosage: 1 PILL 2X DAILY 8AM AND 8PM 1-1-10
     Dates: start: 20091201

REACTIONS (19)
  - ABDOMINAL PAIN [None]
  - AMNESIA [None]
  - CHEST PAIN [None]
  - CONTUSION [None]
  - CONVULSION [None]
  - EYE DISORDER [None]
  - EYE MOVEMENT DISORDER [None]
  - EYE PAIN [None]
  - FATIGUE [None]
  - HAEMORRHAGE [None]
  - MENTAL DISORDER [None]
  - MOOD ALTERED [None]
  - OCULAR HYPERAEMIA [None]
  - PAIN [None]
  - PAINFUL RESPIRATION [None]
  - SLEEP DISORDER [None]
  - SUICIDAL IDEATION [None]
  - VISION BLURRED [None]
  - VISUAL IMPAIRMENT [None]
